FAERS Safety Report 16843976 (Version 1)
Quarter: 2019Q3

REPORT INFORMATION
  Report Type: Spontaneous
  Country: US (occurrence: US)
  Receive Date: 20190802
  Receipt Date: 20190802
  Transmission Date: 20191005
  Serious: Yes (Death)
  Sender: FDA-Public Use
  Company Number: None

PATIENT
  Age: 64 Year
  Sex: Male
  Weight: 74.84 kg

DRUGS (1)
  1. VALSARTAN TABLETS [Suspect]
     Active Substance: VALSARTAN
     Indication: HYPERTENSION

REACTIONS (3)
  - Lung carcinoma cell type unspecified stage IV [None]
  - Coronary artery bypass [None]
  - Recalled product administered [None]

NARRATIVE: CASE EVENT DATE: 20181203
